FAERS Safety Report 14923144 (Version 4)
Quarter: 2019Q1

REPORT INFORMATION
  Report Type: Report from Study
  Country: DE (occurrence: DE)
  Receive Date: 20180522
  Receipt Date: 20190313
  Transmission Date: 20190417
  Serious: Yes (Life-Threatening, Other)
  Sender: FDA-Public Use
  Company Number: PHHY2018DE004790

PATIENT
  Sex: Female
  Weight: 64 kg

DRUGS (6)
  1. LETROZOLE 1A PHARMA [Suspect]
     Active Substance: LETROZOLE
     Indication: BREAST CANCER METASTATIC
     Dosage: 2.5 MG, QD (1-0-0)
     Route: 048
     Dates: start: 20180328, end: 20181219
  2. KISQALI [Suspect]
     Active Substance: RIBOCICLIB
     Dosage: 200 MG, ONCE IN THE MORNING, QD
     Route: 048
     Dates: start: 20180829, end: 20181120
  3. KISQALI [Suspect]
     Active Substance: RIBOCICLIB
     Indication: BREAST CANCER METASTATIC
     Dosage: 600 MG, QD (1-0-0)
     Route: 048
     Dates: start: 20180328, end: 20180424
  4. KISQALI [Suspect]
     Active Substance: RIBOCICLIB
     Dosage: 200 MG, ONCE IN THE MORNING (QD)
     Route: 048
     Dates: start: 20181128, end: 20181218
  5. KISQALI [Suspect]
     Active Substance: RIBOCICLIB
     Dosage: 200 MG, QD (1-0-0)
     Route: 048
     Dates: start: 20180711, end: 20180807
  6. KISQALI [Suspect]
     Active Substance: RIBOCICLIB
     Dosage: 400 MG, QD (1-0-0)
     Route: 048
     Dates: start: 20180509, end: 20180703

REACTIONS (2)
  - Leukopenia [Recovered/Resolved]
  - Neutropenia [Recovered/Resolved]

NARRATIVE: CASE EVENT DATE: 20180410
